FAERS Safety Report 9694243 (Version 1)
Quarter: 2013Q4

REPORT INFORMATION
  Report Type: Spontaneous
  Country: US (occurrence: US)
  Receive Date: 20131118
  Receipt Date: 20131118
  Transmission Date: 20140711
  Serious: No
  Sender: FDA-Public Use
  Company Number: US-PFIZER INC-2013327617

PATIENT
  Age: 67 Year
  Sex: Female
  Weight: 96.15 kg

DRUGS (5)
  1. CHANTIX [Suspect]
     Indication: SMOKING CESSATION THERAPY
     Dosage: 0.5 MG, 1X/DAY
     Route: 048
     Dates: start: 2011, end: 2011
  2. GABAPENTIN [Concomitant]
     Dosage: 300 MG, 2X/DAY
  3. MORPHINE [Concomitant]
     Dosage: 15 MG, 2X/DAY
  4. VITAMIN D [Concomitant]
     Dosage: UNK
  5. SALSALATE [Concomitant]
     Dosage: UNK

REACTIONS (2)
  - Abnormal dreams [Unknown]
  - Weight decreased [Unknown]
